FAERS Safety Report 8112265-3 (Version None)
Quarter: 2012Q1

REPORT INFORMATION
  Report Type: 
  Country: None (occurrence: None)
  Receive Date: 20120203
  Receipt Date: 20120203
  Transmission Date: 20120608
  Serious: Yes (Hospitalization)
  Sender: FDA-Public Use
  Company Number: None

PATIENT
  Age: 68 Year
  Sex: Female
  Weight: 54 kg

DRUGS (8)
  1. ASPIRIN [Concomitant]
     Route: 048
  2. VITAMIN B COMPLEX CAP [Concomitant]
     Route: 048
  3. CLEOCIN 2% [Concomitant]
     Route: 061
  4. MULTI-VITAMINS [Concomitant]
     Route: 048
  5. VAGIFEM [Concomitant]
  6. ZOMETA [Concomitant]
  7. REVLIMID [Suspect]
     Indication: MULTIPLE MYELOMA
     Dosage: 5 MG
     Route: 048
     Dates: start: 20040823, end: 20120103
  8. MYCOLOG-II [Concomitant]

REACTIONS (13)
  - PYREXIA [None]
  - BLOOD PRESSURE DECREASED [None]
  - FUNGAL INFECTION [None]
  - SEPSIS [None]
  - CHILLS [None]
  - FLANK PAIN [None]
  - MYALGIA [None]
  - REFUSAL OF TREATMENT BY PATIENT [None]
  - PANCYTOPENIA [None]
  - POLLAKIURIA [None]
  - FATIGUE [None]
  - PNEUMONIA PRIMARY ATYPICAL [None]
  - DIZZINESS POSTURAL [None]
